FAERS Safety Report 13540576 (Version 3)
Quarter: 2018Q2

REPORT INFORMATION
  Report Type: Report from Study
  Country: US (occurrence: US)
  Receive Date: 20170512
  Receipt Date: 20180418
  Transmission Date: 20180711
  Serious: Yes (Hospitalization, Other)
  Sender: FDA-Public Use
  Company Number: US-AMGEN-USACT2017070192

PATIENT
  Age: 77 Year
  Sex: Female

DRUGS (7)
  1. DASATINIB. [Concomitant]
     Active Substance: DASATINIB
     Dosage: 140 MG, UNK
     Route: 048
  2. DASATINIB. [Concomitant]
     Active Substance: DASATINIB
     Dosage: UNK
     Route: 048
     Dates: start: 20170215
  3. METHOTREXATE. [Concomitant]
     Active Substance: METHOTREXATE
     Dosage: 12 MG, Q6WK
     Route: 037
  4. BLINATUMOMAB [Suspect]
     Active Substance: BLINATUMOMAB
     Indication: ACUTE LYMPHOCYTIC LEUKAEMIA
     Dosage: 9 MUG, CONTINUING
     Route: 042
  5. CYTARABINE. [Concomitant]
     Active Substance: CYTARABINE
     Dosage: 70 MG, Q6WK
     Route: 037
  6. BLINATUMOMAB [Suspect]
     Active Substance: BLINATUMOMAB
     Dosage: UNK
     Route: 042
     Dates: start: 20170214
  7. PREDNISONE. [Concomitant]
     Active Substance: PREDNISONE
     Dosage: 60 MG/M2/DAY UNK
     Route: 048

REACTIONS (1)
  - Hypoxia [Recovered/Resolved]

NARRATIVE: CASE EVENT DATE: 20170216
